FAERS Safety Report 7402324-2 (Version None)
Quarter: 2011Q1

REPORT INFORMATION
  Report Type: 
  Country: None (occurrence: None)
  Receive Date: 20110330
  Receipt Date: 20110317
  Transmission Date: 20110831
  Serious: Yes (Other)
  Sender: FDA-Public Use
  Company Number: SP-S-20110018

PATIENT
  Age: 79 Year
  Sex: Female

DRUGS (4)
  1. RISPERIDONE [Concomitant]
  2. ESTROGEL [Suspect]
     Indication: PRODUCT USED FOR UNKNOWN INDICATION
     Dosage: 2 DOSAGE FORMS, 1 IN 1 D, TOPICAL
     Route: 061
  3. PAXIL [Concomitant]
  4. CLONAZEPAM [Concomitant]

REACTIONS (3)
  - NERVOUSNESS [None]
  - HALLUCINATION, AUDITORY [None]
  - FEELING ABNORMAL [None]
